FAERS Safety Report 6508877-0 (Version None)
Quarter: 2009Q4

REPORT INFORMATION
  Report Type: 
  Country: None (occurrence: None)
  Receive Date: 20091221
  Receipt Date: 20090811
  Transmission Date: 20100525
  Serious: No
  Sender: FDA-Public Use
  Company Number: US-ASTRAZENECA-2009SE07532

PATIENT
  Age: 18115 Day
  Sex: Female

DRUGS (3)
  1. CRESTOR [Suspect]
     Route: 048
     Dates: start: 20090601
  2. NASOCORT NASAL SPRAY [Concomitant]
  3. MULTI-VITAMINS [Concomitant]

REACTIONS (1)
  - MIGRAINE [None]
